FAERS Safety Report 20889864 (Version 1)
Quarter: 2022Q2

REPORT INFORMATION
  Report Type: Spontaneous
  Country: US (occurrence: US)
  Receive Date: 20220530
  Receipt Date: 20220530
  Transmission Date: 20220721
  Serious: Yes (Other)
  Sender: FDA-Public Use
  Company Number: US-009507513-2205USA006974

PATIENT
  Age: 62 Year
  Sex: Male

DRUGS (1)
  1. KEYTRUDA [Suspect]
     Active Substance: PEMBROLIZUMAB
     Indication: Oesophageal carcinoma
     Dosage: UNK, Q3W
     Route: 042
     Dates: start: 202111

REACTIONS (3)
  - Malignant neoplasm progression [Not Recovered/Not Resolved]
  - Thrombosis [Not Recovered/Not Resolved]
  - Product use issue [Unknown]
